FAERS Safety Report 8282758-7 (Version None)
Quarter: 2012Q2

REPORT INFORMATION
  Report Type: 
  Country: None (occurrence: None)
  Receive Date: 20120413
  Receipt Date: 20120402
  Transmission Date: 20120825
  Serious: Yes (Other)
  Sender: FDA-Public Use
  Company Number: JP-ROCHE-1043306

PATIENT
  Sex: Male

DRUGS (22)
  1. VISUDYNE [Concomitant]
     Dates: start: 20080901, end: 20090114
  2. GATIFLOXACIN [Concomitant]
     Dates: start: 20090401, end: 20090601
  3. MUCOSTA [Concomitant]
  4. LANSOPRAZOLE [Concomitant]
  5. RANIBIZUMAB [Suspect]
     Route: 050
     Dates: start: 20090623
  6. RANIBIZUMAB [Suspect]
     Route: 050
     Dates: start: 20100722
  7. DILTIAZEM HCL [Concomitant]
  8. RANIBIZUMAB [Suspect]
     Route: 050
     Dates: start: 20110224
  9. NITRODERM [Concomitant]
  10. ASPIRIN [Concomitant]
  11. RANIBIZUMAB [Suspect]
     Route: 050
     Dates: start: 20091105
  12. RANIBIZUMAB [Suspect]
     Route: 050
     Dates: start: 20100624
  13. RANIBIZUMAB [Suspect]
     Route: 050
     Dates: start: 20100411
  14. GANATON [Concomitant]
  15. RANIBIZUMAB [Suspect]
     Route: 050
     Dates: start: 20090526
  16. WARFARIN SODIUM [Concomitant]
  17. AMBROXOL HYDROCHLORIDE [Concomitant]
  18. RANIBIZUMAB [Suspect]
     Indication: AGE-RELATED MACULAR DEGENERATION
     Route: 050
     Dates: start: 20090423
  19. RANIBIZUMAB [Suspect]
     Route: 050
     Dates: start: 20090716
  20. RANIBIZUMAB [Suspect]
     Route: 050
     Dates: start: 20091203
  21. KALLIDINOGENASE [Concomitant]
     Dates: start: 20090521, end: 20090617
  22. RANIBIZUMAB [Suspect]
     Route: 050
     Dates: start: 20110602

REACTIONS (3)
  - RETINAL HAEMORRHAGE [None]
  - VITREOUS HAEMORRHAGE [None]
  - INAPPROPRIATE SCHEDULE OF DRUG ADMINISTRATION [None]
